FAERS Safety Report 5805384-5 (Version None)
Quarter: 2008Q3

REPORT INFORMATION
  Report Type: 
  Country: None (occurrence: None)
  Receive Date: 20080710
  Receipt Date: 20080703
  Transmission Date: 20090109
  Serious: Yes (Death, Life-Threatening, Hospitalization, Disabling, Other)
  Sender: FDA-Public Use
  Company Number: DE-BRISTOL-MYERS SQUIBB COMPANY-14202022

PATIENT
  Age: 44 Year
  Sex: Male
  Weight: 87 kg

DRUGS (8)
  1. SPRYCEL [Suspect]
     Indication: ACUTE LYMPHOCYTIC LEUKAEMIA
     Route: 048
     Dates: start: 20080415, end: 20080509
  2. HYDROXYUREA [Suspect]
     Route: 048
     Dates: start: 20080510, end: 20080513
  3. TAZOBACTAM [Suspect]
     Indication: PYREXIA
     Dosage: 1 DOSAGE FORM = 4.5 UNITS NOT SPECIFIED
     Dates: start: 20080509, end: 20080513
  4. PANTOPRAZOLE SODIUM [Concomitant]
     Indication: PROPHYLAXIS
     Route: 048
     Dates: start: 20080509, end: 20080513
  5. PREDNISOLONE [Concomitant]
     Indication: HYPERSENSITIVITY
     Route: 048
     Dates: start: 20080509, end: 20080511
  6. DIFLUCAN [Concomitant]
     Indication: INFECTION
     Dosage: DIFLUCAN 200
     Route: 048
     Dates: start: 20080509, end: 20080513
  7. ALLOPURINOL [Concomitant]
     Indication: HYPERURICAEMIA
     Dosage: 1 DOSAGE FORM = 300 UNITS NOT SPECIFIED
     Route: 048
     Dates: start: 20080509, end: 20080513
  8. FENISTIL [Concomitant]
     Indication: HYPERSENSITIVITY
     Dosage: 1 DOSAGE FORM = 1 TABLET
     Route: 048
     Dates: start: 20080509, end: 20080511

REACTIONS (10)
  - BLINDNESS [None]
  - CEREBRAL HAEMORRHAGE [None]
  - DISSEMINATED INTRAVASCULAR COAGULATION [None]
  - ERYTHEMA [None]
  - EYE HAEMORRHAGE [None]
  - HYPERSENSITIVITY [None]
  - MALIGNANT NEOPLASM PROGRESSION [None]
  - PRURITUS [None]
  - PYREXIA [None]
  - THROMBOCYTOPENIA [None]
